FAERS Safety Report 19299087 (Version 5)
Quarter: 2021Q3

REPORT INFORMATION
  Report Type: Report from Study
  Country: US (occurrence: US)
  Receive Date: 20210524
  Receipt Date: 20210716
  Transmission Date: 20211014
  Serious: Yes (Other)
  Sender: FDA-Public Use
  Company Number: NVSC2021US115982

PATIENT
  Sex: Female

DRUGS (1)
  1. ENTRESTO [Suspect]
     Active Substance: SACUBITRIL\VALSARTAN
     Indication: PRODUCT USED FOR UNKNOWN INDICATION
     Dosage: UNK, BID
     Route: 048

REACTIONS (8)
  - Stress [Unknown]
  - Cardiac valve disease [Unknown]
  - Fatigue [Unknown]
  - Cardiac disorder [Unknown]
  - Feeling abnormal [Unknown]
  - Anxiety [Unknown]
  - Ejection fraction decreased [Unknown]
  - Malaise [Unknown]
